FAERS Safety Report 6299598-0 (Version None)
Quarter: 2009Q3

REPORT INFORMATION
  Report Type: 
  Country: None (occurrence: None)
  Receive Date: 20090806
  Receipt Date: 20090728
  Transmission Date: 20100115
  Serious: Yes (Hospitalization)
  Sender: FDA-Public Use
  Company Number: FR-ELI_LILLY_AND_COMPANY-FR200907006137

PATIENT
  Sex: Male

DRUGS (22)
  1. HUMALOG [Suspect]
     Dosage: 4 IU, UNK
     Route: 058
     Dates: start: 20090207
  2. IMODIUM [Concomitant]
     Dosage: UNK
     Dates: end: 20090204
  3. IMUREL [Concomitant]
     Dosage: 50 MG, 2/D
  4. IMUREL [Concomitant]
     Dosage: 50 MG, 2/D
     Route: 042
     Dates: start: 20090206, end: 20090212
  5. NEXIUM [Concomitant]
     Dosage: 20 MG, DAILY (1/D)
     Dates: end: 20090206
  6. NEXIUM [Concomitant]
     Route: 042
  7. MOPRAL [Concomitant]
     Dates: start: 20090206
  8. NEORAL [Concomitant]
     Dosage: 125 MG, 2/D
  9. NEORAL [Concomitant]
     Dosage: UNK
     Route: 042
  10. BACTRIM [Concomitant]
     Dosage: 0.5 UNK, 3/D
  11. DIFFU K [Concomitant]
     Dates: start: 20090107
  12. PRIMPERAN /00041901/ [Concomitant]
     Dates: start: 20090110, end: 20090207
  13. MAGNE-B6 [Concomitant]
     Dates: start: 20090128
  14. UN-ALFA [Concomitant]
     Dates: start: 20090115, end: 20090204
  15. UN-ALFA [Concomitant]
     Dates: start: 20090210
  16. DEROXAT [Concomitant]
     Dates: start: 20090116
  17. ARANESP [Concomitant]
     Dosage: UNK
     Dates: start: 20090207
  18. CORTANCYL [Concomitant]
     Dosage: 20 MG, DAILY (1/D)
     Route: 048
  19. CORTANCYL [Concomitant]
     Dosage: UNK, UNK
     Route: 042
  20. CORTANCYL [Concomitant]
     Dosage: 10 MG, DAILY (1/D)
     Route: 048
     Dates: start: 20090214
  21. SOLUPRED [Concomitant]
     Dosage: 20 MG, DAILY (1/D)
  22. SOLU-MEDROL [Concomitant]
     Dosage: UNK

REACTIONS (1)
  - HEPATITIS [None]
